FAERS Safety Report 11034222 (Version 1)
Quarter: 2015Q2

REPORT INFORMATION
  Report Type: Report from Study
  Country: GB (occurrence: GB)
  Receive Date: 20150415
  Receipt Date: 20150415
  Transmission Date: 20150821
  Serious: Yes (Hospitalization, Other)
  Sender: FDA-Public Use
  Company Number: GB-ABBVIE-15P-167-1360775-00

PATIENT
  Age: 46 Year
  Sex: Female

DRUGS (4)
  1. VIEKIRAX [Suspect]
     Active Substance: OMBITASVIR\PARITAPREVIR\RITONAVIR
     Indication: HEPATITIS C
     Route: 048
     Dates: start: 20150116
  2. RIBAVIRIN. [Suspect]
     Active Substance: RIBAVIRIN
     Indication: HEPATITIS C
     Route: 048
     Dates: start: 20150116
  3. AMITRIPTYLINE [Interacting]
     Active Substance: AMITRIPTYLINE
     Indication: PAIN
     Route: 048
  4. AMITRIPTYLINE [Interacting]
     Active Substance: AMITRIPTYLINE
     Indication: SLEEP DISORDER
     Route: 048

REACTIONS (15)
  - Asthenia [Unknown]
  - Heart rate increased [Recovered/Resolved]
  - Hypertension [Recovered/Resolved]
  - Drug interaction [Recovered/Resolved]
  - Headache [Unknown]
  - Dizziness [Not Recovered/Not Resolved]
  - Fatigue [Unknown]
  - Muscle spasms [Recovered/Resolved]
  - Dyspnoea [Unknown]
  - Hypertension [Unknown]
  - Jaundice [Unknown]
  - Hyperacusis [Unknown]
  - Emotional disorder [Unknown]
  - Dry skin [Unknown]
  - Sleep disorder [Unknown]

NARRATIVE: CASE EVENT DATE: 201501
